FAERS Safety Report 5233165-2 (Version None)
Quarter: 2007Q1

REPORT INFORMATION
  Report Type: 
  Country: None (occurrence: None)
  Receive Date: 20070207
  Receipt Date: 20070126
  Transmission Date: 20070707
  Serious: Yes (Life-Threatening, Hospitalization, Other)
  Sender: FDA-Public Use
  Company Number: JP-PFIZER INC-2007007908

PATIENT
  Age: 80 Year
  Sex: Male

DRUGS (2)
  1. SULPERAZON [Suspect]
     Dosage: DAILY DOSE:1GRAM
     Route: 042
  2. FOY [Suspect]
     Route: 042

REACTIONS (4)
  - ARTERIOSPASM CORONARY [None]
  - DYSPNOEA [None]
  - GENERALISED ERYTHEMA [None]
  - MYOCARDIAL INFARCTION [None]
